FAERS Safety Report 21126825 (Version 1)
Quarter: 2022Q3

REPORT INFORMATION
  Report Type: Spontaneous
  Country: US (occurrence: None)
  Receive Date: 20220725
  Receipt Date: 20220725
  Transmission Date: 20221026
  Serious: Yes (Hospitalization, Other)
  Sender: FDA-Public Use
  Company Number: None

PATIENT
  Age: 24 Year
  Sex: Male
  Weight: 73.8 kg

DRUGS (8)
  1. PROZAC [Suspect]
     Active Substance: FLUOXETINE HYDROCHLORIDE
     Indication: Anxiety
     Dosage: OTHER QUANTITY : 1 CAPSULE(S);?
     Route: 048
     Dates: start: 20220615, end: 20220718
  2. ZOLOFT [Concomitant]
     Active Substance: SERTRALINE HYDROCHLORIDE
  3. VITAMINS [Concomitant]
     Active Substance: VITAMINS
  4. VITAMINS [Concomitant]
     Active Substance: VITAMINS
  5. VITAMINS: C, E [Concomitant]
  6. SELENIUM [Concomitant]
     Active Substance: SELENIUM
  7. ZINC [Concomitant]
     Active Substance: ZINC
  8. LYCOPENE [Concomitant]
     Active Substance: LYCOPENE

REACTIONS (2)
  - Erectile dysfunction [None]
  - Psychotic disorder [None]

NARRATIVE: CASE EVENT DATE: 20220724
